APPROVED DRUG PRODUCT: FOSINOPRIL SODIUM
Active Ingredient: FOSINOPRIL SODIUM
Strength: 10MG
Dosage Form/Route: TABLET;ORAL
Application: A076483 | Product #001 | TE Code: AB
Applicant: CHARTWELL RX SCIENCES LLC
Approved: Apr 23, 2004 | RLD: No | RS: No | Type: RX